FAERS Safety Report 11058504 (Version 4)
Quarter: 2015Q2

REPORT INFORMATION
  Report Type: Spontaneous
  Country: IT (occurrence: IT)
  Receive Date: 20150423
  Receipt Date: 20150515
  Transmission Date: 20150821
  Serious: Yes (Death)
  Sender: FDA-Public Use
  Company Number: IT-ROCHE-1567350

PATIENT
  Age: 58 Year
  Sex: Female

DRUGS (6)
  1. IRINOTECAN [Concomitant]
     Active Substance: IRINOTECAN
  2. OXALIPLATIN ACCORD [Concomitant]
     Active Substance: OXALIPLATIN
     Route: 065
     Dates: start: 20141202, end: 20150310
  3. FLUOROURACILE TEVA [Concomitant]
     Active Substance: FLUOROURACIL
     Route: 065
     Dates: start: 20141202, end: 20150312
  4. LEUCOVORIN [Concomitant]
     Active Substance: LEUCOVORIN
  5. CALCIUM LEVOFOLINATE [Concomitant]
     Active Substance: LEVOLEUCOVORIN CALCIUM
     Route: 042
     Dates: start: 20141202, end: 20150314
  6. AVASTIN [Suspect]
     Active Substance: BEVACIZUMAB
     Indication: COLON CANCER
     Route: 042
     Dates: start: 20141202, end: 20150310

REACTIONS (6)
  - Neutropenia [Fatal]
  - Sepsis [Fatal]
  - Disseminated intravascular coagulation [Fatal]
  - Intestinal perforation [Fatal]
  - Abdominal abscess [Fatal]
  - Thrombocytopenia [Fatal]

NARRATIVE: CASE EVENT DATE: 20150312
